FAERS Safety Report 4404422-4 (Version None)
Quarter: 2004Q3

REPORT INFORMATION
  Report Type: 
  Country: None (occurrence: None)
  Receive Date: 20040719
  Receipt Date: 20040705
  Transmission Date: 20050211
  Serious: Yes (Other)
  Sender: FDA-Public Use
  Company Number: 2004046523

PATIENT
  Age: 6 Year
  Sex: Female

DRUGS (1)
  1. ZITHROMAX [Suspect]
     Indication: PNEUMONIA
     Dosage: 200 MG (200 MG, DAILY), ORAL
     Route: 048
     Dates: start: 20040702, end: 20040704

REACTIONS (1)
  - BODY TEMPERATURE DECREASED [None]
